FAERS Safety Report 4898286-2 (Version None)
Quarter: 2006Q1

REPORT INFORMATION
  Report Type: 
  Country: None (occurrence: None)
  Receive Date: 20060127
  Receipt Date: 20060111
  Transmission Date: 20060701
  Serious: Yes (Hospitalization, Other)
  Sender: FDA-Public Use
  Company Number: USA050699907

PATIENT
  Age: 71 Year
  Sex: Male

DRUGS (1)
  1. HUMALOG [Suspect]

REACTIONS (7)
  - BLOOD GLUCOSE INCREASED [None]
  - DEVICE FAILURE [None]
  - HYDROCEPHALUS [None]
  - PARKINSON'S DISEASE [None]
  - PHARMACEUTICAL PRODUCT COMPLAINT [None]
  - RENAL DISORDER [None]
  - WRONG TECHNIQUE IN DRUG USAGE PROCESS [None]
